FAERS Safety Report 5837979-7 (Version None)
Quarter: 2008Q3

REPORT INFORMATION
  Report Type: 
  Country: None (occurrence: None)
  Receive Date: 20080808
  Receipt Date: 20080115
  Transmission Date: 20090109
  Serious: No
  Sender: FDA-Public Use
  Company Number: A0703340A

PATIENT
  Age: 72 Year
  Sex: Male

DRUGS (4)
  1. PAXIL [Suspect]
     Indication: MAJOR DEPRESSION
     Dosage: 20MG PER DAY
     Route: 048
     Dates: start: 20030101
  2. WELLBUTRIN [Suspect]
     Indication: DEPRESSION
     Route: 048
     Dates: start: 20020101, end: 20020101
  3. PAXIL [Suspect]
     Route: 048
     Dates: start: 20040101
  4. KLONOPIN [Concomitant]

REACTIONS (2)
  - AGITATION [None]
  - WEIGHT INCREASED [None]
